FAERS Safety Report 13833060 (Version 1)
Quarter: 2017Q3

REPORT INFORMATION
  Report Type: Spontaneous
  Country: US (occurrence: US)
  Receive Date: 20170803
  Receipt Date: 20170803
  Transmission Date: 20171127
  Serious: Yes (Death)
  Sender: FDA-Public Use
  Company Number: None

PATIENT
  Age: 72 Year
  Sex: Male

DRUGS (2)
  1. PACLITAXEL 300MG/50ML [Suspect]
     Active Substance: PACLITAXEL
     Dosage: DAY 1 AND 8
     Route: 042
     Dates: start: 20170427
  2. CARBOPLATIN 10MG/ML [Suspect]
     Active Substance: CARBOPLATIN
     Indication: LUNG NEOPLASM MALIGNANT
     Route: 042
     Dates: start: 20170621

REACTIONS (1)
  - Death [None]

NARRATIVE: CASE EVENT DATE: 20170803
